FAERS Safety Report 12697134 (Version 1)
Quarter: 2016Q3

REPORT INFORMATION
  Report Type: Spontaneous
  Country: GB (occurrence: GB)
  Receive Date: 20160830
  Receipt Date: 20160830
  Transmission Date: 20161109
  Serious: Yes (Hospitalization, Other)
  Sender: FDA-Public Use
  Company Number: GB-AUROBINDO-AUR-APL-2013-10427

PATIENT
  Age: 65 Year
  Sex: Male

DRUGS (2)
  1. TAMFREX XL 400 MICROGRAM CAPSULES [Suspect]
     Active Substance: TAMSULOSIN HYDROCHLORIDE
     Indication: LOWER URINARY TRACT SYMPTOMS
  2. TAMFREX XL 400 MICROGRAM CAPSULES [Suspect]
     Active Substance: TAMSULOSIN HYDROCHLORIDE
     Indication: BENIGN PROSTATIC HYPERPLASIA
     Dosage: UNK
     Route: 065

REACTIONS (2)
  - Surgery [Unknown]
  - Drug ineffective [Unknown]
